FAERS Safety Report 13929970 (Version 1)
Quarter: 2017Q3

REPORT INFORMATION
  Report Type: Spontaneous
  Country: US (occurrence: US)
  Receive Date: 20170901
  Receipt Date: 20170901
  Transmission Date: 20171127
  Serious: Yes (Hospitalization, Other)
  Sender: FDA-Public Use
  Company Number: US-AMGEN-USASP2017129791

PATIENT
  Age: 63 Year
  Sex: Female

DRUGS (2)
  1. PROLIA [Suspect]
     Active Substance: DENOSUMAB
     Indication: OSTEOPOROSIS
     Dosage: UNK, UNK
     Route: 065
     Dates: start: 201510
  2. BACTRIM [Concomitant]
     Active Substance: SULFAMETHOXAZOLE\TRIMETHOPRIM

REACTIONS (19)
  - Gait inability [Unknown]
  - Chest discomfort [Unknown]
  - Scab [Unknown]
  - Decreased appetite [Unknown]
  - Urticaria [Unknown]
  - Anaphylactic shock [Unknown]
  - Mobility decreased [Unknown]
  - Rash [Recovered/Resolved]
  - Joint swelling [Unknown]
  - Pain in extremity [Unknown]
  - Scar [Unknown]
  - Abdominal distension [Unknown]
  - Pruritus [Unknown]
  - Lethargy [Unknown]
  - Feeling abnormal [Unknown]
  - Chills [Recovered/Resolved]
  - Rash vesicular [Unknown]
  - Rash maculo-papular [Not Recovered/Not Resolved]
  - Back pain [Unknown]

NARRATIVE: CASE EVENT DATE: 201610
